FAERS Safety Report 4626917-0 (Version None)
Quarter: 2005Q2

REPORT INFORMATION
  Report Type: 
  Country: None (occurrence: None)
  Receive Date: 20050405
  Receipt Date: 20050225
  Transmission Date: 20051028
  Serious: Yes (Disabling)
  Sender: FDA-Public Use
  Company Number: NO-MERCK-0503NOR00005

PATIENT
  Age: 51 Year
  Sex: Female

DRUGS (4)
  1. VIOXX [Suspect]
     Indication: PAIN
     Route: 048
     Dates: start: 20040101, end: 20040101
  2. DESLORATADINE [Suspect]
     Indication: HYPERSENSITIVITY
     Route: 048
     Dates: start: 20040805, end: 20050101
  3. AZITHROMYCIN [Suspect]
     Indication: INFECTION
     Route: 048
     Dates: start: 20040101, end: 20040101
  4. OXCARBAZEPINE [Suspect]
     Indication: EPILEPSY
     Route: 048
     Dates: start: 20040804, end: 20041101

REACTIONS (4)
  - DIZZINESS [None]
  - DYSKINESIA [None]
  - FEELING ABNORMAL [None]
  - NAUSEA [None]
